FAERS Safety Report 8939176 (Version 1)
Quarter: 2012Q4

REPORT INFORMATION
  Report Type: 
  Country: US (occurrence: US)
  Receive Date: 20121203
  Receipt Date: 20121203
  Transmission Date: 20130627
  Serious: No
  Sender: FDA-Public Use
  Company Number: US-PFIZER INC-2012299290

PATIENT
  Age: 36 Year
  Sex: Male
  Weight: 74.83 kg

DRUGS (2)
  1. ZOLOFT [Suspect]
     Indication: PANIC ATTACKS
     Dosage: 25 mg, 1x/day
     Route: 048
     Dates: start: 20121121
  2. CLARITIN [Concomitant]
     Dosage: UNK

REACTIONS (5)
  - Heart rate increased [Not Recovered/Not Resolved]
  - Insomnia [Not Recovered/Not Resolved]
  - Urticaria [Not Recovered/Not Resolved]
  - Rash [Not Recovered/Not Resolved]
  - Food allergy [Not Recovered/Not Resolved]
